FAERS Safety Report 6611760-3 (Version None)
Quarter: 2010Q1

REPORT INFORMATION
  Report Type: 
  Country: None (occurrence: None)
  Receive Date: 20100303
  Receipt Date: 20100219
  Transmission Date: 20100710
  Serious: Yes (Hospitalization, Other)
  Sender: FDA-Public Use
  Company Number: GB-ELI_LILLY_AND_COMPANY-GB201002005826

PATIENT
  Age: 36 Year
  Sex: Male

DRUGS (5)
  1. FLUOXETINE [Suspect]
  2. ABILIFY [Concomitant]
  3. ZAPONEX [Concomitant]
     Dosage: 50 MG, EACH MORNING
     Route: 048
     Dates: start: 20100126, end: 20100206
  4. ZAPONEX [Concomitant]
     Dosage: 100 MG, EACH EVENING
     Route: 048
     Dates: start: 20100126, end: 20100206
  5. ATENOLOL [Concomitant]

REACTIONS (2)
  - OXYGEN SATURATION DECREASED [None]
  - SEDATION [None]
